FAERS Safety Report 15191949 (Version 3)
Quarter: 2018Q3

REPORT INFORMATION
  Report Type: Spontaneous
  Country: HR (occurrence: HR)
  Receive Date: 20180724
  Receipt Date: 20180823
  Transmission Date: 20181010
  Serious: Yes (Life-Threatening, Hospitalization, Other)
  Sender: FDA-Public Use
  Company Number: PHHY2018HR047529

PATIENT
  Sex: Male

DRUGS (4)
  1. DEXAMETHASONE. [Suspect]
     Active Substance: DEXAMETHASONE
     Indication: FOETAL EXPOSURE DURING PREGNANCY
     Dosage: UNK
     Route: 064
  2. AMPICILLIN [Concomitant]
     Active Substance: AMPICILLIN
     Indication: PRODUCT USED FOR UNKNOWN INDICATION
     Dosage: UNK
     Route: 065
  3. GENTAMICIN. [Concomitant]
     Active Substance: GENTAMICIN
     Indication: PRODUCT USED FOR UNKNOWN INDICATION
     Dosage: UNK
     Route: 065
  4. PROGESTERONE. [Suspect]
     Active Substance: PROGESTERONE
     Indication: FOETAL EXPOSURE DURING PREGNANCY
     Dosage: UNK
     Route: 064

REACTIONS (12)
  - Premature baby [Unknown]
  - Low birth weight baby [Unknown]
  - Pneumoperitoneum [Unknown]
  - Necrotising colitis [Recovered/Resolved]
  - Hypopnoea [Unknown]
  - Apnoea [Unknown]
  - Pneumatosis intestinalis [Recovered/Resolved]
  - Foetal exposure during pregnancy [Unknown]
  - Abdominal distension [Unknown]
  - Hyperbilirubinaemia [Recovered/Resolved]
  - Intestinal perforation [Recovered/Resolved]
  - Klebsiella infection [Unknown]
